FAERS Safety Report 7969567-0 (Version None)
Quarter: 2011Q4

REPORT INFORMATION
  Report Type: 
  Country: None (occurrence: None)
  Receive Date: 20111212
  Receipt Date: 20111207
  Transmission Date: 20120403
  Serious: Yes (Other)
  Sender: FDA-Public Use
  Company Number: CA-PFIZER INC-2011276992

PATIENT
  Age: 79 Year
  Sex: Female
  Weight: 58.957 kg

DRUGS (3)
  1. ATIVAN [Concomitant]
     Indication: ANXIETY
     Dosage: 1 MG, AS NEEDED
  2. ATACAND [Concomitant]
     Indication: BLOOD PRESSURE
     Dosage: 12.5 MG, 1X/DAY
  3. IBUPROFEN [Suspect]
     Indication: HEADACHE
     Dosage: ONE TIME ONLY
     Route: 048
     Dates: start: 20111121, end: 20111122

REACTIONS (4)
  - CHOKING [None]
  - FOREIGN BODY [None]
  - OROPHARYNGEAL PAIN [None]
  - DYSPHAGIA [None]
